FAERS Safety Report 5824135-1 (Version None)
Quarter: 2008Q3

REPORT INFORMATION
  Report Type: 
  Country: None (occurrence: None)
  Receive Date: 20080728
  Receipt Date: 20080716
  Transmission Date: 20090109
  Serious: Yes (Hospitalization, Other)
  Sender: FDA-Public Use
  Company Number: US-ROCHE-512832

PATIENT
  Sex: Male
  Weight: 74.8 kg

DRUGS (3)
  1. ACCUTANE [Suspect]
     Indication: ACNE
     Dosage: ACCUTANE 40 MG WAS DISPENSED ON 14 JULY 2001, 13 SEPTEMBER 2001, 15 OCTOBER 2001, 12 NOVEMBER 2001,+
     Route: 048
     Dates: start: 20010714, end: 20010912
  2. ACCUTANE [Suspect]
     Route: 048
     Dates: start: 20010913, end: 20020101
  3. ACCUTANE [Suspect]
     Dosage: ACCUTANE 40 MG WAS DISPENSED ON 14 JULY 2001, 13 SEPTEMBER 2001, 15 OCTOBER 2001, 12 NOVEMBER 2001,+
     Route: 048
     Dates: start: 20040412, end: 20040612

REACTIONS (10)
  - ANXIETY [None]
  - APPENDICITIS [None]
  - COLONIC FISTULA [None]
  - CROHN'S DISEASE [None]
  - DEPRESSION [None]
  - FEAR [None]
  - HEADACHE [None]
  - ILL-DEFINED DISORDER [None]
  - INFLAMMATORY BOWEL DISEASE [None]
  - LIP DRY [None]
